FAERS Safety Report 20664031 (Version 4)
Quarter: 2024Q1

REPORT INFORMATION
  Report Type: Other
  Country: JP (occurrence: JP)
  Receive Date: 20220401
  Receipt Date: 20240117
  Transmission Date: 20240410
  Serious: Yes (Hospitalization, Other)
  Sender: FDA-Public Use
  Company Number: JP-CHUGAI-2022010700

PATIENT
  Age: 68 Year
  Sex: Male
  Weight: 63.9 kg

DRUGS (5)
  1. AVASTIN [Suspect]
     Active Substance: BEVACIZUMAB
     Indication: Hepatocellular carcinoma
     Route: 041
  2. TECENTRIQ [Suspect]
     Active Substance: ATEZOLIZUMAB
     Indication: Hepatocellular carcinoma
     Route: 041
  3. METHYLPREDNISOLONE [Concomitant]
     Active Substance: METHYLPREDNISOLONE
     Dosage: 1000 MG/DAY FOR 3 DAYS
  4. PREDNISOLONE [Concomitant]
     Active Substance: PREDNISOLONE
     Route: 048
  5. LENVATINIB [Concomitant]
     Active Substance: LENVATINIB
     Indication: Hepatocellular carcinoma

REACTIONS (2)
  - Encephalitis autoimmune [Recovering/Resolving]
  - Liver disorder [Unknown]
